FAERS Safety Report 4696526-6 (Version None)
Quarter: 2005Q2

REPORT INFORMATION
  Report Type: 
  Country: None (occurrence: None)
  Receive Date: 20050608
  Receipt Date: 20050405
  Transmission Date: 20051028
  Serious: Yes (Hospitalization)
  Sender: FDA-Public Use
  Company Number: F03200500046

PATIENT
  Age: 78 Year
  Sex: Male

DRUGS (4)
  1. ELOXATIN [Suspect]
     Indication: COLON CANCER STAGE III
     Dosage: 118 MG Q2W - INTRAVENOUS NOS
     Route: 042
     Dates: start: 20040818, end: 20040818
  2. LEUCOVORIN CALCIUM [Suspect]
     Indication: COLON CANCER STAGE III
     Dosage: 724 MG Q2W - INTRAVENOUS NOS
     Route: 042
     Dates: start: 20041221, end: 20041221
  3. FLUOROURACIL [Suspect]
     Indication: COLON CANCER STAGE III
     Dosage: 400 MG/M2 IV PUSH ON DAY 1 FOLLOWED BY 2400 MG/M2 CONTINOUS IV OVER 46-48 HOURS EVERY TWO WEEKS - IN
     Route: 042
     Dates: start: 20040101, end: 20041221
  4. IRINOTECAN HCL [Suspect]
     Indication: COLON CANCER STAGE III
     Dosage: 272 MG Q2W - INTRAVENOUS NOS
     Route: 042
     Dates: start: 20040101, end: 20041221

REACTIONS (4)
  - BRONCHIAL INFECTION [None]
  - BRONCHITIS [None]
  - DYSPNOEA [None]
  - MUCOSAL INFLAMMATION [None]
